FAERS Safety Report 18297379 (Version 1)
Quarter: 2020Q3

REPORT INFORMATION
  Report Type: Report from Study
  Country: US (occurrence: US)
  Receive Date: 20200922
  Receipt Date: 20200922
  Transmission Date: 20201103
  Serious: Yes (Other)
  Sender: FDA-Public Use
  Company Number: US-UCBSA-2020009816

PATIENT
  Age: 31 Year
  Sex: Female

DRUGS (2)
  1. CERTOLIZUMAB PEGOL [Suspect]
     Active Substance: CERTOLIZUMAB PEGOL
     Indication: PSORIASIS
     Dosage: 400 MILLIGRAM, EV 2 WEEKS(QOW)
     Dates: start: 20200221, end: 2020
  2. CERTOLIZUMAB PEGOL [Suspect]
     Active Substance: CERTOLIZUMAB PEGOL
     Dosage: 200 MILLIGRAM, EV 2 WEEKS(QOW)
     Dates: start: 2020, end: 20200412

REACTIONS (17)
  - Skin warm [Unknown]
  - Dyspnoea [Unknown]
  - Injection site pain [Recovered/Resolved]
  - Skin discolouration [Recovered/Resolved]
  - Lip discolouration [Unknown]
  - Product administered at inappropriate site [Unknown]
  - Rash [Unknown]
  - Hot flush [Recovered/Resolved]
  - Contusion [Recovered/Resolved]
  - Injection site swelling [Recovered/Resolved]
  - Presyncope [Recovered/Resolved]
  - Fatigue [Unknown]
  - Nausea [Unknown]
  - Dizziness [Recovered/Resolved]
  - Lethargy [Recovered/Resolved]
  - Sensitive skin [Recovered/Resolved]
  - Paraesthesia [Unknown]

NARRATIVE: CASE EVENT DATE: 2020
